FAERS Safety Report 10195394 (Version 2)
Quarter: 2014Q2

REPORT INFORMATION
  Report Type: Report from Study
  Country: US (occurrence: US)
  Receive Date: 20140526
  Receipt Date: 20140526
  Transmission Date: 20141212
  Serious: Yes (Disabling)
  Sender: FDA-Public Use
  Company Number: PHEH2014US007340

PATIENT
  Age: 35 Year
  Sex: Female
  Weight: 96.6 kg

DRUGS (7)
  1. EXTAVIA [Suspect]
     Indication: MULTIPLE SCLEROSIS
     Dosage: 0.3 MG, QOD
     Route: 058
     Dates: start: 201401, end: 20140403
  2. COPAXONE [Concomitant]
     Dosage: 40 MG TIW
  3. RANITIDINE [Concomitant]
     Dosage: UNK UKN, UNK
  4. OMEPRAZOLE [Concomitant]
     Dosage: UNK UKN, UNK
  5. BUPROPION [Concomitant]
     Dosage: UNK UKN, UNK
  6. CALCIO + VIT D [Concomitant]
     Dosage: UNK UKN, UNK
  7. MVI [Concomitant]
     Dosage: UNK UKN, UNK

REACTIONS (5)
  - Optic neuritis [Recovering/Resolving]
  - Visual acuity reduced [Unknown]
  - Headache [Recovered/Resolved]
  - Injection site erythema [Unknown]
  - Injection site bruising [Unknown]
